FAERS Safety Report 10093236 (Version 1)
Quarter: 2014Q2

REPORT INFORMATION
  Report Type: Spontaneous
  Country: US (occurrence: US)
  Receive Date: 20140421
  Receipt Date: 20140421
  Transmission Date: 20141212
  Serious: No
  Sender: FDA-Public Use
  Company Number: US-SANOFI-AVENTIS-2013SA055114

PATIENT
  Age: 80 Year
  Sex: Male

DRUGS (3)
  1. ALLEGRA [Suspect]
     Indication: SEASONAL ALLERGY
     Dosage: TAKEN FROM- ABOUT A WEEK AGO
     Route: 048
  2. WARFARIN [Suspect]
     Dosage: TAKEN FROM AT LEAST 10 YEARS
  3. WARFARIN [Suspect]
     Dosage: TAKEN FROM AT LEAST 10 YEARS

REACTIONS (1)
  - Epistaxis [Recovered/Resolved]
